FAERS Safety Report 21743311 (Version 2)
Quarter: 2023Q1

REPORT INFORMATION
  Report Type: Report from Study
  Country: CO (occurrence: CO)
  Receive Date: 20221217
  Receipt Date: 20230108
  Transmission Date: 20230417
  Serious: Yes (Other)
  Sender: FDA-Public Use
  Company Number: CO-ABBVIE-4239772

PATIENT
  Age: 59 Year
  Sex: Female
  Weight: 70 kg

DRUGS (2)
  1. HUMIRA [Suspect]
     Active Substance: ADALIMUMAB
     Indication: Ankylosing spondylitis
     Route: 058
     Dates: end: 20220927
  2. HUMIRA [Suspect]
     Active Substance: ADALIMUMAB
     Dosage: FIRST ADMIN DATE-2022
     Route: 058
     Dates: end: 202211

REACTIONS (26)
  - Erythema nodosum [Recovered/Resolved]
  - Urine odour abnormal [Unknown]
  - Rhinitis [Recovering/Resolving]
  - Cough [Not Recovered/Not Resolved]
  - Urinary tract infection [Recovered/Resolved]
  - Headache [Recovering/Resolving]
  - Bladder disorder [Unknown]
  - Sputum discoloured [Recovering/Resolving]
  - Urinary tract infection [Unknown]
  - Pain in extremity [Recovered/Resolved]
  - Dysuria [Not Recovered/Not Resolved]
  - Dry throat [Recovering/Resolving]
  - Productive cough [Not Recovered/Not Resolved]
  - Oedema peripheral [Recovered/Resolved]
  - Chest discomfort [Not Recovered/Not Resolved]
  - Erythema [Recovered/Resolved]
  - Fatigue [Recovering/Resolving]
  - Erythema [Recovered/Resolved]
  - Throat irritation [Recovering/Resolving]
  - Oedema [Recovered/Resolved]
  - Inflammation [Recovered/Resolved]
  - Pain [Recovering/Resolving]
  - Bone pain [Recovered/Resolved]
  - Oropharyngeal pain [Recovering/Resolving]
  - Arthritis [Recovered/Resolved]
  - Influenza [Recovering/Resolving]

NARRATIVE: CASE EVENT DATE: 20211201
